APPROVED DRUG PRODUCT: TECHNELITE
Active Ingredient: TECHNETIUM TC-99M SODIUM PERTECHNETATE GENERATOR
Strength: 1-20 CI/GENERATOR
Dosage Form/Route: SOLUTION;INTRAVENOUS
Application: N017771 | Product #002
Applicant: LANTHEUS MEDICAL IMAGING INC
Approved: Feb 12, 2014 | RLD: Yes | RS: Yes | Type: RX